FAERS Safety Report 9190808 (Version 3)
Quarter: 2013Q2

REPORT INFORMATION
  Report Type: Report from Study
  Country: IE (occurrence: IE)
  Receive Date: 20130326
  Receipt Date: 20130514
  Transmission Date: 20140414
  Serious: Yes (Life-Threatening, Hospitalization)
  Sender: FDA-Public Use
  Company Number: IE-ROCHE-1202728

PATIENT
  Age: 39 Year
  Sex: Female

DRUGS (13)
  1. TRASTUZUMAB [Suspect]
     Indication: HER-2 POSITIVE BREAST CANCER
     Route: 065
     Dates: start: 20091202
  2. TRASTUZUMAB [Suspect]
     Route: 065
     Dates: start: 20110726, end: 20111115
  3. CAPECITABINE [Suspect]
     Indication: BREAST CANCER METASTATIC
     Route: 048
     Dates: start: 20120209, end: 20120222
  4. CAPECITABINE [Suspect]
     Route: 048
  5. CAPECITABINE [Suspect]
     Route: 048
     Dates: end: 20120904
  6. LAPATINIB [Suspect]
     Indication: BREAST CANCER METASTATIC
     Route: 048
     Dates: start: 20120130, end: 20120222
  7. LAPATINIB [Suspect]
     Dosage: DOSE REDUCED.
     Route: 048
     Dates: end: 20120904
  8. TRASTUZUMAB EMTANSINE [Concomitant]
     Route: 065
  9. VINORELBINE [Concomitant]
     Route: 065
     Dates: start: 20111206, end: 20120119
  10. PACLITAXEL [Concomitant]
     Route: 065
     Dates: start: 20110726, end: 20111115
  11. ZOLEDRONIC ACID [Concomitant]
     Route: 042
     Dates: start: 20100909, end: 201104
  12. GEMCITABINE [Concomitant]
  13. DOXORUBICIN [Concomitant]
     Route: 065
     Dates: start: 20120906, end: 20120927

REACTIONS (3)
  - Palmar-plantar erythrodysaesthesia syndrome [Recovered/Resolved]
  - Diarrhoea [Recovered/Resolved]
  - Disease progression [Unknown]
